FAERS Safety Report 6479570-8 (Version None)
Quarter: 2009Q4

REPORT INFORMATION
  Report Type: 
  Country: None (occurrence: None)
  Receive Date: 20091208
  Receipt Date: 20091125
  Transmission Date: 20100525
  Serious: Yes (Other)
  Sender: FDA-Public Use
  Company Number: US-JNJFOC-20091202109

PATIENT
  Age: 68 Year
  Sex: Female

DRUGS (2)
  1. TYLENOL W/ CODEINE NO. 2 [Suspect]
     Indication: NEURALGIA
     Route: 065
  2. LYRICA [Suspect]
     Indication: DRUG USE FOR UNKNOWN INDICATION
     Route: 065

REACTIONS (1)
  - MENTAL DISORDER [None]
